FAERS Safety Report 18386025 (Version 1)
Quarter: 2020Q4

REPORT INFORMATION
  Report Type: Report from Study
  Country: CN (occurrence: CN)
  Receive Date: 20201015
  Receipt Date: 20201015
  Transmission Date: 20210114
  Serious: Yes (Death, Other)
  Sender: FDA-Public Use
  Company Number: CN-SUN PHARMACEUTICAL INDUSTRIES LTD-2020R1-264161

PATIENT
  Weight: .82 kg

DRUGS (4)
  1. PENICILLIN-G [Suspect]
     Active Substance: PENICILLIN G
     Indication: LISTERIOSIS
     Dosage: UNK
     Route: 064
  2. AZITHROMYCINE [Suspect]
     Active Substance: AZITHROMYCIN
     Indication: LISTERIOSIS
     Dosage: UNK
     Route: 064
  3. CEFUROXIME. [Suspect]
     Active Substance: CEFUROXIME
     Indication: LISTERIOSIS
     Dosage: UNK
     Route: 064
  4. CEFTRIAXONE. [Suspect]
     Active Substance: CEFTRIAXONE
     Indication: LISTERIOSIS
     Dosage: UNK
     Route: 064

REACTIONS (7)
  - Neonatal respiratory distress syndrome [Unknown]
  - Death [Fatal]
  - Foetal exposure during pregnancy [Unknown]
  - Low birth weight baby [Unknown]
  - Foetal distress syndrome [Unknown]
  - Premature baby [Unknown]
  - Hyperlactacidaemia [Unknown]
